FAERS Safety Report 18443904 (Version 3)
Quarter: 2020Q4

REPORT INFORMATION
  Report Type: Spontaneous
  Country: US (occurrence: US)
  Receive Date: 20201030
  Receipt Date: 20201113
  Transmission Date: 20210114
  Serious: Yes (Life-Threatening, Hospitalization)
  Sender: FDA-Public Use
  Company Number: US-009507513-2010USA009977

PATIENT
  Age: 51 Year
  Sex: Male
  Weight: 87.7 kg

DRUGS (14)
  1. HYDROXYCHLOROQUINE SULFATE. [Concomitant]
     Active Substance: HYDROXYCHLOROQUINE SULFATE
     Indication: ATRIAL FIBRILLATION
  2. LEVAQUIN [Concomitant]
     Active Substance: LEVOFLOXACIN
  3. FLUCONAZOLE. [Concomitant]
     Active Substance: FLUCONAZOLE
  4. ZERBAXA [Suspect]
     Active Substance: CEFTOLOZANE SULFATE\TAZOBACTAM SODIUM
     Indication: PNEUMONIA PSEUDOMONAL
     Dosage: 3 GRAM
     Route: 042
     Dates: start: 20200813, end: 20200903
  5. MYCAMINE [Concomitant]
     Active Substance: MICAFUNGIN SODIUM
  6. CIPRO [Concomitant]
     Active Substance: CIPROFLOXACIN HYDROCHLORIDE
  7. ZOSYN [Concomitant]
     Active Substance: PIPERACILLIN SODIUM\TAZOBACTAM SODIUM
  8. COLISTIN [Concomitant]
     Active Substance: COLISTIN
  9. VANCOMYCIN [Concomitant]
     Active Substance: VANCOMYCIN
  10. LINEZOLID. [Concomitant]
     Active Substance: LINEZOLID
  11. ZERBAXA [Suspect]
     Active Substance: CEFTOLOZANE SULFATE\TAZOBACTAM SODIUM
     Dosage: 3 GRAM
     Route: 042
     Dates: start: 20201013, end: 20201026
  12. FLAGYL (METRONIDAZOLE BENZOATE) [Concomitant]
     Active Substance: METRONIDAZOLE BENZOATE
  13. GENTAMICIN. [Concomitant]
     Active Substance: GENTAMICIN
  14. TOPRAMYCIN [Concomitant]

REACTIONS (3)
  - Lung disorder [Not Recovered/Not Resolved]
  - Wound [Not Recovered/Not Resolved]
  - Drug resistance [Not Recovered/Not Resolved]

NARRATIVE: CASE EVENT DATE: 2020
